FAERS Safety Report 7936143-5 (Version None)
Quarter: 2011Q4

REPORT INFORMATION
  Report Type: 
  Country: None (occurrence: None)
  Receive Date: 20111121
  Receipt Date: 20111109
  Transmission Date: 20120403
  Serious: Yes (Hospitalization, Other)
  Sender: FDA-Public Use
  Company Number: TPA2011A07567

PATIENT
  Age: 69 Year
  Sex: Male
  Weight: 101.1521 kg

DRUGS (2)
  1. ACTOS [Suspect]
     Indication: TYPE 2 DIABETES MELLITUS
     Dosage: 1 IN 1 D, ORAL
     Route: 048
     Dates: start: 20031201, end: 20081201
  2. UNKNOWN BLOOD PRESSURE MEDICATION (ANTIHYPERTENSIVES) [Concomitant]

REACTIONS (5)
  - WEIGHT INCREASED [None]
  - CEREBROVASCULAR ACCIDENT [None]
  - MYOCARDIAL INFARCTION [None]
  - CARDIAC FAILURE CONGESTIVE [None]
  - DYSPNOEA [None]
